FAERS Safety Report 4986772-6 (Version None)
Quarter: 2006Q2

REPORT INFORMATION
  Report Type: 
  Country: None (occurrence: None)
  Receive Date: 20060428
  Receipt Date: 20050202
  Transmission Date: 20061013
  Serious: Yes (Hospitalization, Disabling, Other)
  Sender: FDA-Public Use
  Company Number: US-MERCK-0502USA00370

PATIENT
  Age: 59 Year
  Sex: Female
  Weight: 118 kg

DRUGS (1)
  1. VIOXX [Suspect]
     Indication: ARTHRITIS
     Route: 048
     Dates: start: 19990101, end: 20040901

REACTIONS (29)
  - AMNESIA [None]
  - ANGINA PECTORIS [None]
  - ARRHYTHMIA [None]
  - ARTERIOSCLEROSIS [None]
  - ARTHRALGIA [None]
  - BLOOD CHOLESTEROL INCREASED [None]
  - CARDIAC DISORDER [None]
  - CELLULITIS [None]
  - CEREBRAL ATROPHY [None]
  - CEREBROVASCULAR ACCIDENT [None]
  - CHEST PAIN [None]
  - DIABETES MELLITUS [None]
  - DIABETES MELLITUS INSULIN-DEPENDENT [None]
  - ELECTROCARDIOGRAM ABNORMAL [None]
  - EMBOLISM [None]
  - EYE DISORDER [None]
  - FACIAL PALSY [None]
  - HEART RATE IRREGULAR [None]
  - HYPERLIPIDAEMIA [None]
  - HYPERTENSION [None]
  - LACRIMATION INCREASED [None]
  - MEMORY IMPAIRMENT [None]
  - MYDRIASIS [None]
  - OSTEOARTHRITIS [None]
  - PAIN [None]
  - PERIPHERAL VASCULAR DISORDER [None]
  - PRESCRIBED OVERDOSE [None]
  - ROAD TRAFFIC ACCIDENT [None]
  - VISUAL FIELD DEFECT [None]
